FAERS Safety Report 19750084 (Version 2)
Quarter: 2021Q4

REPORT INFORMATION
  Report Type: Spontaneous
  Country: US (occurrence: US)
  Receive Date: 20210826
  Receipt Date: 20211005
  Transmission Date: 20220304
  Serious: No
  Sender: FDA-Public Use
  Company Number: US-PURACAP-US-2021EPCSPO00894

PATIENT
  Age: 64 Year
  Sex: Female
  Weight: 157 kg

DRUGS (4)
  1. ERGOCALCIFEROL [Suspect]
     Active Substance: ERGOCALCIFEROL
     Indication: Vitamin supplementation
     Route: 048
     Dates: start: 20210803, end: 20210803
  2. CETIRIZINE HYDROCHLORIDE [Concomitant]
     Active Substance: CETIRIZINE HYDROCHLORIDE
     Indication: Hypersensitivity
     Route: 065
  3. IBUPROFEN [Interacting]
     Active Substance: IBUPROFEN
     Indication: Pain
     Route: 065
  4. BENADRYL [Interacting]
     Active Substance: DIPHENHYDRAMINE HYDROCHLORIDE
     Indication: Hypersensitivity

REACTIONS (7)
  - Hypersensitivity [Recovered/Resolved]
  - Sinus congestion [Recovered/Resolved]
  - Paranasal sinus inflammation [Recovered/Resolved]
  - Mastication disorder [Recovered/Resolved]
  - Discomfort [Recovered/Resolved]
  - Toothache [Recovered/Resolved]
  - Swelling face [Recovered/Resolved]

NARRATIVE: CASE EVENT DATE: 20210804
